FAERS Safety Report 22270221 (Version 10)
Quarter: 2023Q4

REPORT INFORMATION
  Report Type: Spontaneous
  Country: US (occurrence: US)
  Receive Date: 20230501
  Receipt Date: 20231115
  Transmission Date: 20240109
  Serious: No
  Sender: FDA-Public Use
  Company Number: US-PFIZER INC-PV202300074468

PATIENT
  Age: 77 Year
  Sex: Female

DRUGS (2)
  1. IBRANCE [Suspect]
     Active Substance: PALBOCICLIB
     Dosage: 125 MG
  2. IBRANCE [Suspect]
     Active Substance: PALBOCICLIB
     Dosage: 100 MG
     Dates: end: 20231026

REACTIONS (9)
  - Urinary tract infection [Unknown]
  - Asthenia [Unknown]
  - Epistaxis [Unknown]
  - Sinus disorder [Unknown]
  - Solar lentigo [Unknown]
  - Full blood count decreased [Unknown]
  - Alopecia [Not Recovered/Not Resolved]
  - White blood cell count decreased [Unknown]
  - Neoplasm progression [Unknown]

NARRATIVE: CASE EVENT DATE: 20230430
